FAERS Safety Report 12401297 (Version 1)
Quarter: 2016Q2

REPORT INFORMATION
  Report Type: Spontaneous
  Country: US (occurrence: US)
  Receive Date: 20160525
  Receipt Date: 20160525
  Transmission Date: 20160815
  Serious: No
  Sender: FDA-Public Use
  Company Number: US-MDT-ADR-2016-00083

PATIENT
  Age: 57 Year
  Sex: Female

DRUGS (7)
  1. NORCO [Suspect]
     Active Substance: ACETAMINOPHEN\HYDROCODONE BITARTRATE
     Route: 048
  2. COMPOUNDED BACLOFEN [Suspect]
     Active Substance: BACLOFEN
     Dosage: 149.99 MCG/DAY
     Route: 037
  3. FENTANYL. [Suspect]
     Active Substance: FENTANYL
     Dosage: 149.99 MCG/DAY
     Route: 037
  4. CLONIDINE. [Suspect]
     Active Substance: CLONIDINE
     Dosage: 131.49 MCG/DAY
     Route: 037
  5. NEURONTIN [Suspect]
     Active Substance: GABAPENTIN
     Route: 048
  6. BUPIVACAINE. [Suspect]
     Active Substance: BUPIVACAINE
     Route: 037
  7. SOMA [Suspect]
     Active Substance: CARISOPRODOL
     Route: 065

REACTIONS (3)
  - Arthralgia [Unknown]
  - Disease progression [Unknown]
  - Back pain [Unknown]

NARRATIVE: CASE EVENT DATE: 20151110
